FAERS Safety Report 4742105-1 (Version None)
Quarter: 2005Q3

REPORT INFORMATION
  Report Type: 
  Country: None (occurrence: None)
  Receive Date: 20050808
  Receipt Date: 20050729
  Transmission Date: 20060218
  Serious: Yes (Other)
  Sender: FDA-Public Use
  Company Number: EM2005-0364

PATIENT
  Age: 50 Year
  Sex: Male
  Weight: 74.8 kg

DRUGS (5)
  1. PROLEUKIN [Suspect]
     Indication: HIV INFECTION
     Dosage: 7.5 MIU, SUBCUTAN.
     Route: 058
     Dates: start: 20010507, end: 20010512
  2. EFAVIRENZ [Concomitant]
  3. LAMIVUDINE [Concomitant]
  4. STAVUDINE [Concomitant]
  5. ABACAVIR (ABACAVIR) [Concomitant]

REACTIONS (1)
  - ALANINE AMINOTRANSFERASE INCREASED [None]
